FAERS Safety Report 6309441-9 (Version None)
Quarter: 2009Q3

REPORT INFORMATION
  Report Type: 
  Country: None (occurrence: None)
  Receive Date: 20090811
  Receipt Date: 20090602
  Transmission Date: 20100115
  Serious: No
  Sender: FDA-Public Use
  Company Number: 1000006584

PATIENT
  Sex: 0

DRUGS (1)
  1. SAVELLA [Suspect]
     Dates: start: 20090528

REACTIONS (1)
  - BLISTER [None]
